FAERS Safety Report 8458948 (Version 3)
Quarter: 2013Q3

REPORT INFORMATION
  Report Type: Report from Study
  Country: US (occurrence: US)
  Receive Date: 20120314
  Receipt Date: 20130903
  Transmission Date: 20140515
  Serious: Yes (Hospitalization, Disabling, Other)
  Sender: FDA-Public Use
  Company Number: PHHO2012US003005

PATIENT
  Age: 67 Year
  Sex: Female
  Weight: 85.3 kg

DRUGS (2)
  1. ALISKIREN [Suspect]
     Indication: CARDIOVASCULAR DISORDER
     Route: 048
     Dates: start: 20080326, end: 20111221
  2. PREDNISONE [Suspect]
     Indication: PROPHYLAXIS
     Dosage: 2 DF, UNK
     Dates: start: 20120222, end: 20120222

REACTIONS (3)
  - Acute pulmonary oedema [Recovered/Resolved]
  - Coronary artery disease [Recovered/Resolved]
  - Carotid artery disease [Unknown]
